FAERS Safety Report 25382602 (Version 1)
Quarter: 2025Q2

REPORT INFORMATION
  Report Type: Report from Study
  Country: CA (occurrence: CA)
  Receive Date: 20250601
  Receipt Date: 20250601
  Transmission Date: 20250717
  Serious: Yes (Hospitalization)
  Sender: ABBVIE
  Company Number: CA-ABBVIE-6306236

PATIENT
  Age: 74 Year
  Sex: Male

DRUGS (1)
  1. SKYRIZI [Suspect]
     Active Substance: RISANKIZUMAB-RZAA
     Indication: Colitis ulcerative
     Dosage: FORM STRENGTH: 600MG/10ML?1200MG (2 VIALS) EVERY 4WEEKS (3 PERFUSIONS)
     Route: 042
     Dates: start: 20250415

REACTIONS (3)
  - Chills [Unknown]
  - Pyrexia [Unknown]
  - Fatigue [Unknown]

NARRATIVE: CASE EVENT DATE: 20250101
